FAERS Safety Report 6204230-8 (Version None)
Quarter: 2009Q2

REPORT INFORMATION
  Report Type: 
  Country: None (occurrence: None)
  Receive Date: 20090518
  Receipt Date: 20090209
  Transmission Date: 20091009
  Serious: No
  Sender: FDA-Public Use
  Company Number: WAES 0902USA01502

PATIENT
  Age: 61 Year
  Sex: Female

DRUGS (6)
  1. JANUVIA [Suspect]
     Indication: TYPE 2 DIABETES MELLITUS
     Dosage: 100 MG/DAILY/PO
     Route: 048
     Dates: start: 20081001, end: 20090202
  2. ACTOS [Concomitant]
  3. LIPITOR [Concomitant]
  4. QUESTRAN [Concomitant]
  5. LISINOPRIL [Concomitant]
  6. LITHIUM CARBONATE [Concomitant]

REACTIONS (1)
  - DYSGEUSIA [None]
